FAERS Safety Report 18218587 (Version 3)
Quarter: 2020Q3

REPORT INFORMATION
  Report Type: Spontaneous
  Country: RU (occurrence: RU)
  Receive Date: 20200901
  Receipt Date: 20200924
  Transmission Date: 20201103
  Serious: Yes (Other)
  Sender: FDA-Public Use
  Company Number: RU-BAYER-2020-180402

PATIENT
  Age: 82 Year
  Sex: Female
  Weight: 70 kg

DRUGS (4)
  1. ULTRAVIST [Suspect]
     Active Substance: IOPROMIDE
     Indication: X-RAY WITH CONTRAST
     Dosage: 100 ML, ONCE
     Route: 042
     Dates: start: 20200819, end: 20200819
  2. ENALAPRIL [Concomitant]
     Active Substance: ENALAPRIL
     Dosage: 5 MG, BID
  3. METOPROLOL. [Concomitant]
     Active Substance: METOPROLOL
     Indication: MYOCARDIAL ISCHAEMIA
     Dosage: 25 MG
     Route: 048
  4. ACETYLSALICYLIC ACID [Concomitant]
     Active Substance: ASPIRIN
     Indication: MYOCARDIAL ISCHAEMIA

REACTIONS (5)
  - Shift to the left [None]
  - Arthralgia [Recovering/Resolving]
  - Body temperature increased [Recovering/Resolving]
  - Tremor [Recovering/Resolving]
  - Abdominal pain lower [Recovering/Resolving]

NARRATIVE: CASE EVENT DATE: 20200819
